FAERS Safety Report 20605436 (Version 1)
Quarter: 2022Q1

REPORT INFORMATION
  Report Type: Report from Study
  Country: US (occurrence: US)
  Receive Date: 20220317
  Receipt Date: 20220317
  Transmission Date: 20220424
  Serious: Yes (Other)
  Sender: FDA-Public Use
  Company Number: US-JNJFOC-20220331130

PATIENT
  Age: 48 Year
  Sex: Male

DRUGS (2)
  1. RIVAROXABAN [Suspect]
     Active Substance: RIVAROXABAN
     Indication: Pulmonary embolism
     Route: 048
     Dates: start: 20170625
  2. RIVAROXABAN [Suspect]
     Active Substance: RIVAROXABAN
     Indication: Deep vein thrombosis

REACTIONS (1)
  - Neoplasm malignant [Unknown]
